FAERS Safety Report 14111326 (Version 3)
Quarter: 2019Q2

REPORT INFORMATION
  Report Type: Report from Study
  Country: HU (occurrence: HU)
  Receive Date: 20171020
  Receipt Date: 20190416
  Transmission Date: 20190711
  Serious: Yes (Hospitalization, Other)
  Sender: FDA-Public Use
  Company Number: PHHY2017HU151685

PATIENT
  Age: 73 Year
  Sex: Male
  Weight: 95 kg

DRUGS (11)
  1. MEKINIST [Suspect]
     Active Substance: TRAMETINIB DIMETHYL SULFOXIDE
     Dosage: 1 DF, QD
     Route: 048
     Dates: start: 20180530, end: 20181019
  2. TAFINLAR [Suspect]
     Active Substance: DABRAFENIB MESYLATE
     Dosage: 75 MG, BID
     Route: 048
     Dates: start: 20170823, end: 20170907
  3. MEKINIST [Suspect]
     Active Substance: TRAMETINIB DIMETHYL SULFOXIDE
     Dosage: 1 DF, QD
     Route: 048
     Dates: start: 20181022, end: 20190213
  4. ZELBORAF [Concomitant]
     Active Substance: VEMURAFENIB
     Indication: PRODUCT USED FOR UNKNOWN INDICATION
     Dosage: 2 DF, BID
     Route: 065
     Dates: start: 20171018, end: 20171102
  5. COTELLIC [Concomitant]
     Active Substance: COBIMETINIB
     Indication: PRODUCT USED FOR UNKNOWN INDICATION
     Dosage: UNK
     Route: 065
     Dates: start: 20171018
  6. TAFINLAR [Suspect]
     Active Substance: DABRAFENIB MESYLATE
     Dosage: 2 DF, BID
     Route: 048
     Dates: start: 20180530, end: 20181019
  7. TAFINLAR [Suspect]
     Active Substance: DABRAFENIB MESYLATE
     Dosage: 2 DF, QD
     Route: 048
     Dates: start: 20190213
  8. TAFINLAR [Suspect]
     Active Substance: DABRAFENIB MESYLATE
     Dosage: 2 DF, BID
     Route: 048
     Dates: start: 20181022
  9. MEKINIST [Suspect]
     Active Substance: TRAMETINIB DIMETHYL SULFOXIDE
     Indication: MALIGNANT MELANOMA
     Dosage: 2 MG, QD
     Route: 048
     Dates: start: 20170802, end: 20170816
  10. MEKINIST [Suspect]
     Active Substance: TRAMETINIB DIMETHYL SULFOXIDE
     Dosage: 2 MG, QD
     Route: 048
     Dates: start: 20170823, end: 20170907
  11. TAFINLAR [Suspect]
     Active Substance: DABRAFENIB MESYLATE
     Indication: MALIGNANT MELANOMA
     Dosage: 150 MG, BID
     Route: 048
     Dates: start: 20170802, end: 20170816

REACTIONS (27)
  - Upper respiratory tract infection [Unknown]
  - Skin lesion [Unknown]
  - Blood phosphorus decreased [Unknown]
  - Leukopenia [Recovered/Resolved]
  - Atrial fibrillation [Unknown]
  - Metastatic lymphoma [Recovering/Resolving]
  - Chills [Recovered/Resolved]
  - Blood calcium decreased [Unknown]
  - Asthenia [Unknown]
  - Cyanosis central [Unknown]
  - Bladder cancer recurrent [Unknown]
  - Papule [Unknown]
  - Metastases to skin [Recovering/Resolving]
  - Lipomatosis [Unknown]
  - Glomerular filtration rate decreased [Unknown]
  - Pericardial effusion [Unknown]
  - Cardiomegaly [Unknown]
  - Urinary tract infection [Unknown]
  - Hydrothorax [Unknown]
  - Malignant melanoma [Unknown]
  - Ejection fraction decreased [Recovered/Resolved]
  - Blood magnesium decreased [Unknown]
  - Cardiac failure [Recovered/Resolved]
  - Electrocardiogram QT prolonged [Not Recovered/Not Resolved]
  - Malignant neoplasm progression [Unknown]
  - Anaemia [Recovered/Resolved]
  - Dizziness [Unknown]

NARRATIVE: CASE EVENT DATE: 20170816
